FAERS Safety Report 8076228-9 (Version None)
Quarter: 2012Q1

REPORT INFORMATION
  Report Type: 
  Country: None (occurrence: None)
  Receive Date: 20120127
  Receipt Date: 20120120
  Transmission Date: 20120608
  Serious: Yes (Hospitalization)
  Sender: FDA-Public Use
  Company Number: NO-PFIZER INC-2012017138

PATIENT
  Age: 66 Year
  Sex: Male

DRUGS (13)
  1. PANTOPRAZOLE [Suspect]
     Dosage: 40 MG, 1X/DAY
     Dates: start: 20101001
  2. OXYCODONE HCL [Concomitant]
     Dosage: UP TO 50 MG/DAY
  3. ACETAMINOPHEN [Suspect]
     Dosage: 3-4 G,M DAILY
     Dates: start: 20111023, end: 20111114
  4. HALOPERIDOL [Concomitant]
     Dosage: 1 MG, 1X/DAY
     Dates: start: 20111101, end: 20111114
  5. OXAZEPAM [Concomitant]
     Indication: INSOMNIA
     Dosage: 25 MG, 1X/DAY
     Dates: start: 20111001
  6. BUPIVACAINE HCL [Concomitant]
     Dosage: UNK
     Route: 008
     Dates: start: 20111001
  7. ACETAMINOPHEN [Suspect]
     Indication: ANALGESIC THERAPY
     Dosage: 5 G, DAILY FOR THE FIRST FEW DAYS
     Dates: start: 20111023, end: 20111114
  8. CODEINE [Concomitant]
     Dosage: UP TO 180 MG CODEINE/DAY (GIVEN AS A COMBINATION PREPARATION WITH ACETHAMINOPHEN).
     Dates: start: 20111024, end: 20111030
  9. LACTULOSE [Concomitant]
     Dosage: 15 MG, 2X/DAY
  10. ZOPICLONE [Concomitant]
     Indication: INSOMNIA
     Dosage: 5-7,5 MG/DAY
     Dates: start: 20111001
  11. ARTHROTEC [Suspect]
     Indication: ANALGESIC THERAPY
     Dosage: UP TO 100-150 MG DICLOFENAC/DAY
     Dates: start: 20111111
  12. ROPIVACAINE HYDROCHLORIDE [Concomitant]
     Dosage: UNK
     Route: 008
     Dates: start: 20111001
  13. MUCOMYST [Concomitant]
     Indication: SALIVARY HYPERSECRETION
     Route: 048
     Dates: start: 20110101

REACTIONS (1)
  - CHOLESTASIS [None]
